FAERS Safety Report 5327085-2 (Version None)
Quarter: 2007Q2

REPORT INFORMATION
  Report Type: 
  Country: None (occurrence: None)
  Receive Date: 20070517
  Receipt Date: 20070511
  Transmission Date: 20071010
  Serious: Yes (Other)
  Sender: FDA-Public Use
  Company Number: US-JNJFOC-20070502953

PATIENT
  Age: 72 Year
  Sex: Female
  Weight: 79.38 kg

DRUGS (5)
  1. PEPCID AC [Suspect]
  2. PEPCID AC [Suspect]
     Indication: DYSPEPSIA
  3. NORVASC [Concomitant]
     Indication: HYPERTENSION
  4. DIOVAN [Concomitant]
     Indication: HYPERTENSION
  5. LITHIUM CARBONATE [Concomitant]

REACTIONS (1)
  - RENAL DISORDER [None]
